FAERS Safety Report 5657356-1 (Version None)
Quarter: 2008Q1

REPORT INFORMATION
  Report Type: 
  Country: None (occurrence: None)
  Receive Date: 20080310
  Receipt Date: 20080304
  Transmission Date: 20080703
  Serious: Yes (Other)
  Sender: FDA-Public Use
  Company Number: JP-ASTRAZENECA-2008AP01373

PATIENT
  Age: 69 Year
  Sex: Male

DRUGS (4)
  1. CRESTOR [Suspect]
     Indication: HYPERLIPIDAEMIA
     Route: 048
     Dates: start: 20061102, end: 20080217
  2. PRORENAL [Concomitant]
     Indication: LUMBAR SPINAL STENOSIS
     Dosage: DOSE UNKNOWN
     Route: 048
  3. NEUROTROPIN [Concomitant]
     Indication: LUMBAR SPINAL STENOSIS
     Dosage: DOSE UNKNOWN
     Route: 065
  4. CYANOCOBALAMIN [Concomitant]
     Indication: LUMBAR SPINAL STENOSIS
     Dosage: DOSE UNKNOWN
     Route: 065

REACTIONS (1)
  - HYPERKALAEMIA [None]
